FAERS Safety Report 5680845-0 (Version None)
Quarter: 2008Q1

REPORT INFORMATION
  Report Type: 
  Country: None (occurrence: None)
  Receive Date: 20080325
  Receipt Date: 20080312
  Transmission Date: 20080703
  Serious: Yes (Hospitalization, Other)
  Sender: FDA-Public Use
  Company Number: 2008US000664

PATIENT
  Age: 10 Year
  Sex: Female
  Weight: 47.6 kg

DRUGS (16)
  1. TACROLIMUS [Suspect]
     Dosage: BID, TOPICAL
     Route: 061
     Dates: start: 20030101
  2. SINGULAIR [Concomitant]
  3. XOPENEX [Concomitant]
  4. PAXIL [Concomitant]
  5. BENADRYL (SODIUM CITRATE, AMMONIUM CHLORIDE) [Concomitant]
  6. ZOLOFT [Concomitant]
  7. INVEGA [Concomitant]
  8. PROZAC [Concomitant]
  9. ABILIFY [Concomitant]
  10. KLONOPIN [Concomitant]
  11. SEROQUEL [Concomitant]
  12. CELEXA [Concomitant]
  13. RISPERDAL [Concomitant]
  14. THORAZINE [Concomitant]
  15. ALBUTEROL (SALBUTAMOL SULFATE) [Concomitant]
  16. ALBUTEROL (SALBUTAMOL SULFATE) [Concomitant]

REACTIONS (3)
  - ANXIETY DISORDER [None]
  - HALLUCINATION, AUDITORY [None]
  - SUICIDAL IDEATION [None]
